FAERS Safety Report 5547267-4 (Version None)
Quarter: 2007Q4

REPORT INFORMATION
  Report Type: 
  Country: None (occurrence: None)
  Receive Date: 20071211
  Receipt Date: 20071128
  Transmission Date: 20080405
  Serious: Yes (Life-Threatening, Hospitalization)
  Sender: FDA-Public Use
  Company Number: JP-GENENTECH-249568

PATIENT
  Sex: Female

DRUGS (3)
  1. BEVACIZUMAB [Suspect]
     Indication: NON-SMALL CELL LUNG CANCER
     Dosage: 609 MG, Q3W
     Route: 042
     Dates: start: 20070601, end: 20070928
  2. PACLITAXEL [Suspect]
     Indication: NON-SMALL CELL LUNG CANCER
     Dosage: 263 MG, Q3W
     Route: 042
     Dates: start: 20070601, end: 20070928
  3. CARBOPLATIN [Suspect]
     Indication: NON-SMALL CELL LUNG CANCER
     Dosage: 731 MG, Q3W
     Route: 042
     Dates: start: 20070601, end: 20070928

REACTIONS (3)
  - ANOREXIA [None]
  - CARDIOMYOPATHY [None]
  - FATIGUE [None]
